FAERS Safety Report 5778548-7 (Version None)
Quarter: 2008Q2

REPORT INFORMATION
  Report Type: 
  Country: None (occurrence: None)
  Receive Date: 20080618
  Receipt Date: 20080221
  Transmission Date: 20081010
  Serious: No
  Sender: FDA-Public Use
  Company Number: 08H-163-0313906-00

PATIENT
  Age: 62 Year
  Sex: Male

DRUGS (3)
  1. PANHEPRIN [Suspect]
     Indication: CENTRAL VENOUS CATHETERISATION
     Dosage: 5 ML, ONCE, INJECTION
     Dates: start: 20071107, end: 20071107
  2. PANHEPRIN [Suspect]
     Indication: CENTRAL VENOUS CATHETERISATION
     Dosage: 5 ML, ONCE, INJECTION
     Dates: start: 20071203, end: 20071203
  3. SALINE (SODIUM CHLORIDE) [Concomitant]

REACTIONS (4)
  - HEART RATE DECREASED [None]
  - HYPERHIDROSIS [None]
  - PALLOR [None]
  - PALPITATIONS [None]
